FAERS Safety Report 16280714 (Version 1)
Quarter: 2019Q2

REPORT INFORMATION
  Report Type: Spontaneous
  Country: US (occurrence: US)
  Receive Date: 20190401
  Receipt Date: 20190401
  Transmission Date: 20190711
  Serious: No
  Sender: FDA-Public Use
  Company Number: None

PATIENT
  Age: 63 Year
  Sex: Male

DRUGS (2)
  1. PREDNISONE. [Concomitant]
     Active Substance: PREDNISONE
  2. ENTYVIO [Suspect]
     Active Substance: VEDOLIZUMAB
     Dates: start: 201703, end: 201803

REACTIONS (1)
  - Therapeutic product effect decreased [None]

NARRATIVE: CASE EVENT DATE: 20190311
